FAERS Safety Report 19589087 (Version 1)
Quarter: 2021Q3

REPORT INFORMATION
  Report Type: Report from Study
  Country: US (occurrence: US)
  Receive Date: 20210721
  Receipt Date: 20210721
  Transmission Date: 20211014
  Serious: Yes (Hospitalization, Other)
  Sender: FDA-Public Use
  Company Number: US-PFIZER INC-2021887500

PATIENT
  Age: 64 Year
  Sex: Male

DRUGS (8)
  1. ENBREL [Suspect]
     Active Substance: ETANERCEPT
     Dosage: 25 MILLIGRAM, BID
     Route: 065
  2. METHYLPREDNISOLONE ACETATE. [Suspect]
     Active Substance: METHYLPREDNISOLONE ACETATE
     Indication: ARTHRITIS
     Dosage: 40 MILLIGRAM (20 MG PER INJECTION, PER KNEE)
     Route: 065
  3. STELARA [Concomitant]
     Active Substance: USTEKINUMAB
     Indication: ARTHRITIS
     Dosage: UNK
  4. METHYLPREDNISOLONE ACETATE. [Suspect]
     Active Substance: METHYLPREDNISOLONE ACETATE
     Dosage: 80 MILLIGRAM (40 MG PER INJECTION, PER KNEE)
     Route: 065
  5. HUMIRA [Concomitant]
     Active Substance: ADALIMUMAB
     Indication: ARTHRITIS
     Dosage: UNK
  6. COSENTYX [Concomitant]
     Active Substance: SECUKINUMAB
     Indication: ARTHRITIS
     Dosage: UNK
  7. ENBREL [Suspect]
     Active Substance: ETANERCEPT
     Indication: PSORIATIC ARTHROPATHY
     Dosage: 25 MILLIGRAM, 2 TIMES/WK
     Route: 065
  8. ENBREL [Suspect]
     Active Substance: ETANERCEPT
     Dosage: 25 MILLIGRAM, 2 TIMES/WK
     Route: 065

REACTIONS (9)
  - Illness [Recovered/Resolved]
  - Injection site pain [Unknown]
  - Pneumonia [Unknown]
  - Therapeutic product effect decreased [Unknown]
  - Wrong technique in product usage process [Unknown]
  - Cat scratch disease [Unknown]
  - Cellulitis [Unknown]
  - Abscess [Unknown]
  - Intentional product misuse [Unknown]
